FAERS Safety Report 10210101 (Version 1)
Quarter: 2014Q2

REPORT INFORMATION
  Report Type: Spontaneous
  Country: GB (occurrence: None)
  Receive Date: 20140528
  Receipt Date: 20140528
  Transmission Date: 20141212
  Serious: Yes (Hospitalization)
  Sender: FDA-Public Use
  Company Number: AUR-APL-2014-06030

PATIENT
  Age: 50 Year
  Sex: Male
  Weight: 88 kg

DRUGS (3)
  1. FLUOXETINE (FLUOXETINE) [Suspect]
     Indication: DEPRESSED MOOD
     Route: 048
     Dates: start: 20130815, end: 20131127
  2. IBUPROFEN (IBUPROFEN) [Concomitant]
  3. PARACETAMOL (PARACETAMOL) [Concomitant]

REACTIONS (7)
  - Sinus bradycardia [None]
  - Orthostatic hypotension [None]
  - Dizziness [None]
  - Presyncope [None]
  - Balance disorder [None]
  - Blood creatinine increased [None]
  - Cardiac arrest [None]
